FAERS Safety Report 10052509 (Version 1)
Quarter: 2014Q2

REPORT INFORMATION
  Report Type: Spontaneous
  Country: US (occurrence: None)
  Receive Date: 20140401
  Receipt Date: 20140401
  Transmission Date: 20141212
  Serious: Yes (Disabling)
  Sender: FDA-Public Use
  Company Number: None

PATIENT
  Age: 88 Year
  Sex: Female
  Weight: 43.55 kg

DRUGS (10)
  1. PROLIA [Suspect]
     Indication: BONE DENSITY ABNORMAL
     Dosage: HAS HAD 3 SHOTS 3 MO APART ?INJECTION
     Dates: start: 2012, end: 201305
  2. AMLODIPINE [Concomitant]
  3. BEMICAN [Concomitant]
  4. LEVOTHYROXINE [Concomitant]
  5. GLYCOPYNOBATE [Concomitant]
  6. MULTIVITAMINES [Concomitant]
  7. CITRACOL [Concomitant]
  8. VITAMIN E,C,D [Concomitant]
  9. BIOTIN [Concomitant]
  10. BENDACTRYL CHILDRENS LIQUID [Concomitant]

REACTIONS (5)
  - Jaw fracture [None]
  - Tongue injury [None]
  - Haemoptysis [None]
  - Dysphagia [None]
  - Pain [None]
